FAERS Safety Report 17690383 (Version 3)
Quarter: 2025Q3

REPORT INFORMATION
  Report Type: Spontaneous
  Country: EU (occurrence: EU)
  Receive Date: 20200421
  Receipt Date: 20250811
  Transmission Date: 20251021
  Serious: Yes (Other)
  Sender: BOEHRINGER INGELHEIM
  Company Number: EU-002147023-NVSC2020CZ091581

PATIENT
  Age: 40 Year
  Sex: Male
  Weight: 103 kg

DRUGS (9)
  1. MICARDIS [Suspect]
     Active Substance: TELMISARTAN
     Indication: Essential hypertension
  2. AMLODIPINE [Suspect]
     Active Substance: AMLODIPINE BESYLATE
     Indication: Essential hypertension
  3. SIMVASTATIN [Suspect]
     Active Substance: SIMVASTATIN
     Indication: Dyslipidaemia
     Route: 048
  4. GABAPENTIN [Concomitant]
     Active Substance: GABAPENTIN
     Indication: Product used for unknown indication
  5. GABAPENTIN [Concomitant]
     Active Substance: GABAPENTIN
  6. METFORMIN HYDROCHLORIDE [Concomitant]
     Active Substance: METFORMIN HYDROCHLORIDE
     Indication: Product used for unknown indication
  7. METFORMIN HYDROCHLORIDE [Concomitant]
     Active Substance: METFORMIN HYDROCHLORIDE
  8. CANAGLIFLOZIN [Concomitant]
     Active Substance: CANAGLIFLOZIN
     Indication: Product used for unknown indication
  9. CANAGLIFLOZIN [Concomitant]
     Active Substance: CANAGLIFLOZIN

REACTIONS (8)
  - Back pain [Recovering/Resolving]
  - Peripheral motor neuropathy [Unknown]
  - Paraesthesia [Unknown]
  - Diabetic neuropathy [Unknown]
  - Diabetes mellitus [Recovering/Resolving]
  - Oedema peripheral [Recovered/Resolved]
  - Polyneuropathy [Unknown]
  - Symptom recurrence [Unknown]

NARRATIVE: CASE EVENT DATE: 20181201
